FAERS Safety Report 10019172 (Version 1)
Quarter: 2014Q1

REPORT INFORMATION
  Report Type: Spontaneous
  Country: US (occurrence: None)
  Receive Date: 20140314
  Receipt Date: 20140314
  Transmission Date: 20141002
  Serious: Yes (Other)
  Sender: FDA-Public Use
  Company Number: None

PATIENT
  Age: 65 Year
  Sex: Female
  Weight: 67.13 kg

DRUGS (2)
  1. DULOXETINE [Suspect]
     Indication: PRODUCT SUBSTITUTION ISSUE
     Dosage: CYMBALTA 30MG 3 PER DAY  QD  ORAL
     Route: 048
     Dates: start: 20140201, end: 20140313
  2. CYMBALTA [Concomitant]

REACTIONS (6)
  - Product substitution issue [None]
  - Depression [None]
  - Feeling abnormal [None]
  - Abnormal dreams [None]
  - Affect lability [None]
  - Impaired work ability [None]
